FAERS Safety Report 24671818 (Version 1)
Quarter: 2024Q4

REPORT INFORMATION
  Report Type: Spontaneous
  Country: US (occurrence: US)
  Receive Date: 20241127
  Receipt Date: 20241127
  Transmission Date: 20250115
  Serious: Yes (Death, Hospitalization)
  Sender: FRESENIUS MEDICAL CARE
  Company Number: US-FMCRTG-FMC-2411-001524

PATIENT
  Age: 78 Year
  Sex: Female
  Weight: 94.5 kg

DRUGS (17)
  1. DELFLEX WITH DEXTROSE 1.5% LOW MAGNESIUM LOW CALCIUM [Suspect]
     Active Substance: CALCIUM CHLORIDE\DEXTROSE\MAGNESIUM CHLORIDE\SODIUM CHLORIDE\SODIUM LACTATE
     Indication: End stage renal disease
     Dosage: CCPD 7 TIMES A WEEK, CA 2.5 MEQ/L, MG 1.5 MEQ/L DEXTROSE, 6 EXCHANGES, FILL VOL 2500 ML, LAST FILL V
     Route: 033
  2. DELFLEX WITH DEXTROSE 2.5% LOW MAGNESIUM LOW CALCIUM [Suspect]
     Active Substance: CALCIUM CHLORIDE\DEXTROSE\MAGNESIUM CHLORIDE\SODIUM CHLORIDE\SODIUM LACTATE
     Indication: End stage renal disease
     Dosage: CCPD 7 TIMES A WEEK, CA 2.5 MEQ/L, MG 1.5 MEQ/L DEXTROSE, 6 EXCHANGES, FILL VOL 2500 ML, LAST FILL V
     Route: 033
  3. DELFLEX WITH DEXTROSE 4.25% LOW MAGNESIUM LOW CALCIUM [Suspect]
     Active Substance: CALCIUM CHLORIDE\DEXTROSE\MAGNESIUM CHLORIDE\SODIUM CHLORIDE\SODIUM LACTATE
     Indication: End stage renal disease
     Dosage: CCPD 7 TIMES A WEEK, CA 2.5 MEQ/L, MG 1.5 MEQ/L DEXTROSE, 6 EXCHANGES, FILL VOL 2500 ML, LAST FILL V
     Route: 033
  4. CALCITRIOL [Concomitant]
     Active Substance: CALCITRIOL
     Dosage: 0.5 MCG ORAL, 4 DAYS A WEEK
  5. CARAFATE [Concomitant]
     Active Substance: SUCRALFATE
     Dosage: 1 G ORAL, BEFORE MEALS
  6. GENTAMICIN [Concomitant]
     Active Substance: GENTAMICIN
     Dosage: GENTAMICIN CREAM APPLY TO PD EXIT SITE ONCE A DAY
  7. LEVO-T [Concomitant]
     Active Substance: LEVOTHYROXINE SODIUM
     Dosage: 25 MCG ORAL 1 IN MORNING AND 2 TABS ON SATURDAY AND SUNDAY
  8. MAGNESIUM [Concomitant]
     Active Substance: MAGNESIUM
     Dosage: 2 TABS ONCE DAILY
  9. MECLIZINE [Concomitant]
     Active Substance: MECLIZINE HYDROCHLORIDE
     Dosage: 25 MG ORAL
  10. MIDODRINE [Concomitant]
     Active Substance: MIDODRINE
     Dosage: 5 MG ORAL, 2-TAB MORNING 2-TAB EARLY AFTERNOON
  11. ONDANSETRON [Concomitant]
     Active Substance: ONDANSETRON
     Dosage: 4 MG ORAL FOR NAUSEA
  12. POTASSIUM CHLORIDE [Concomitant]
     Active Substance: POTASSIUM CHLORIDE
     Dosage: 10 MEQ ORAL, ONCE A DAY
  13. Probiotic and acidophilus (lactobac comb) [Concomitant]
  14. PROTONIX [Concomitant]
     Active Substance: PANTOPRAZOLE SODIUM
  15. Rena-vite (B complex-vitamin c-folic acid) [Concomitant]
  16. RENVELA [Concomitant]
     Active Substance: SEVELAMER CARBONATE
     Dosage: 800 MG ORAL 3 TIMES A DAY
  17. Toprol XL (metoprolol succinate) [Concomitant]

REACTIONS (4)
  - Sepsis [Fatal]
  - Intestinal perforation [Not Recovered/Not Resolved]
  - Peritonitis [Not Recovered/Not Resolved]
  - Catheter site infection [Not Recovered/Not Resolved]
